FAERS Safety Report 24152029 (Version 1)
Quarter: 2024Q3

REPORT INFORMATION
  Report Type: Spontaneous
  Country: US (occurrence: US)
  Receive Date: 20240730
  Receipt Date: 20240730
  Transmission Date: 20241016
  Serious: No
  Sender: SAREPTA THERAPEUTICS
  Company Number: US-SAREPTA THERAPEUTICS INC.-SRP2024-004418

PATIENT
  Age: 20 Year
  Sex: Male

DRUGS (1)
  1. AMONDYS 45 [Suspect]
     Active Substance: CASIMERSEN
     Indication: Duchenne muscular dystrophy
     Dosage: 1200 MILLIGRAM, WEEKLY
     Route: 042
     Dates: start: 2021

REACTIONS (4)
  - Flank pain [Unknown]
  - Creatinine renal clearance abnormal [Unknown]
  - Renal function test abnormal [Unknown]
  - Proteinuria [Unknown]

NARRATIVE: CASE EVENT DATE: 20240227
